FAERS Safety Report 7983244-1 (Version None)
Quarter: 2011Q4

REPORT INFORMATION
  Report Type: 
  Country: None (occurrence: None)
  Receive Date: 20111215
  Receipt Date: 20111202
  Transmission Date: 20120403
  Serious: Yes (Other)
  Sender: FDA-Public Use
  Company Number: PHFR2011GB05880

PATIENT
  Sex: Male

DRUGS (2)
  1. CLOZARIL [Suspect]
     Indication: SCHIZOPHRENIA, PARANOID TYPE
     Dosage: 400 MG,
     Route: 048
     Dates: start: 20080101
  2. CLOZARIL [Suspect]
     Dosage: 12.5 MG,
     Route: 048

REACTIONS (1)
  - CATATONIA [None]
